FAERS Safety Report 5505222-4 (Version None)
Quarter: 2007Q4

REPORT INFORMATION
  Report Type: 
  Country: None (occurrence: None)
  Receive Date: 20071031
  Receipt Date: 20071018
  Transmission Date: 20080405
  Serious: Yes (Other)
  Sender: FDA-Public Use
  Company Number: 2007333814

PATIENT
  Age: 6 Year
  Sex: Male

DRUGS (1)
  1. CHLORPHENIRAMINE/PHENYLEPHRINE [Suspect]

REACTIONS (4)
  - AGITATION [None]
  - HALLUCINATION [None]
  - SCREAMING [None]
  - SLEEP DISORDER [None]
